FAERS Safety Report 4834821-8 (Version None)
Quarter: 2005Q4

REPORT INFORMATION
  Report Type: 
  Country: None (occurrence: None)
  Receive Date: 20051122
  Receipt Date: 20051118
  Transmission Date: 20060501
  Serious: Yes (Other)
  Sender: FDA-Public Use
  Company Number: PHNU2005DE03816

PATIENT
  Age: 66 Year
  Sex: Male

DRUGS (6)
  1. CLOZARIL [Suspect]
     Indication: SCHIZOPHRENIA
     Dosage: 50/25/50MG/DAY
  2. DIGIMERCK [Concomitant]
     Dosage: 0.5MG/WEEK
  3. ACETYLSALICYLIC ACID [Concomitant]
     Dosage: 100 MG, QD
  4. ASTONIN-H [Concomitant]
     Dosage: 0.2 MG, QD
  5. SODIUM CHLORIDE [Concomitant]
     Dosage: 2 DF, TID
  6. ERGENYL CHRONO [Concomitant]
     Dosage: 150 MG, QD
     Dates: end: 20051018

REACTIONS (7)
  - ADRENAL INSUFFICIENCY [None]
  - ATRIAL FIBRILLATION [None]
  - BRAIN CONTUSION [None]
  - CORONARY ARTERY DISEASE [None]
  - FALL [None]
  - GRAND MAL CONVULSION [None]
  - HYPONATRAEMIA [None]
